FAERS Safety Report 9983877 (Version 1)
Quarter: 2014Q1

REPORT INFORMATION
  Report Type: Spontaneous
  Country: US (occurrence: US)
  Receive Date: 20140307
  Receipt Date: 20140307
  Transmission Date: 20141002
  Serious: Yes (Hospitalization)
  Sender: FDA-Public Use
  Company Number: US-TEVA-466989USA

PATIENT
  Age: 74 Year
  Sex: Female

DRUGS (1)
  1. DICLOXACILLIN [Suspect]
     Indication: CELLULITIS
     Route: 065

REACTIONS (2)
  - Cutaneous vasculitis [Recovering/Resolving]
  - Drug eruption [Recovering/Resolving]
